FAERS Safety Report 7561883-X (Version None)
Quarter: 2011Q2

REPORT INFORMATION
  Report Type: 
  Country: None (occurrence: None)
  Receive Date: 20110621
  Receipt Date: 20110608
  Transmission Date: 20111010
  Serious: Yes (Hospitalization)
  Sender: FDA-Public Use
  Company Number: PHHY2011AU46003

PATIENT
  Sex: Male

DRUGS (5)
  1. REVLIMID [Concomitant]
  2. VIDAZA [Concomitant]
  3. EXJADE [Suspect]
     Indication: IRON OVERLOAD
     Dosage: 500 MG, UNK
     Route: 048
     Dates: start: 20100311
  4. EXJADE [Suspect]
     Dosage: 1500 MG, UNK
     Route: 048
     Dates: start: 20100311
  5. PLATELETS [Concomitant]

REACTIONS (3)
  - PNEUMONIA [None]
  - DIZZINESS [None]
  - DIARRHOEA [None]
